FAERS Safety Report 5203926-4 (Version None)
Quarter: 2007Q1

REPORT INFORMATION
  Report Type: 
  Country: None (occurrence: None)
  Receive Date: 20070109
  Receipt Date: 20070109
  Transmission Date: 20070707
  Serious: Yes (Life-Threatening, Hospitalization)
  Sender: FDA-Public Use
  Company Number: None

PATIENT
  Age: 68 Year
  Sex: Male
  Weight: 97.5234 kg

DRUGS (1)
  1. PRAVASTATIN [Suspect]
     Indication: BLOOD CHOLESTEROL INCREASED
     Dosage: 40 MG ONCE DAILY

REACTIONS (6)
  - BLOOD BLISTER [None]
  - FATIGUE [None]
  - PLATELET COUNT DECREASED [None]
  - PRURITUS [None]
  - RASH MACULAR [None]
  - SKIN DISCOLOURATION [None]
